FAERS Safety Report 9149295 (Version 2)
Quarter: 2013Q1

REPORT INFORMATION
  Report Type: Spontaneous
  Country: AU (occurrence: None)
  Receive Date: 20130131
  Receipt Date: 20130206
  Transmission Date: 20140127
  Serious: Yes (Life-Threatening)
  Sender: FDA-Public Use
  Company Number: FK201300198

PATIENT
  Age: 59 Year
  Sex: Male

DRUGS (6)
  1. SODIUM CHLORIDE 0.9% [Suspect]
     Indication: HAEMODYNAMIC INSTABILITY
     Dosage: 1500 ML, 1 IN 1 D, INTRAVENOUS
     Route: 041
     Dates: start: 20101014, end: 20101014
  2. CITALOPRAM (CITALOPRAM) (CITALOPRAM) [Suspect]
     Indication: PRODUCT USED FOR UNKNOWN INDICATION
     Dates: start: 20101024, end: 20101112
  3. FUROSEMIDE (FUROSEMIDE) [Concomitant]
  4. WARFARIN (WARFARIN) [Concomitant]
  5. ENOXAPARIN (ENOXAPARIN) [Concomitant]
  6. OXYCODONE (OXYCODONE) [Concomitant]

REACTIONS (1)
  - Toxic epidermal necrolysis [None]
